FAERS Safety Report 23851767 (Version 2)
Quarter: 2024Q2

REPORT INFORMATION
  Report Type: Report from Study
  Country: CA (occurrence: CA)
  Receive Date: 20240514
  Receipt Date: 20240606
  Transmission Date: 20240715
  Serious: Yes (Hospitalization, Other)
  Sender: FDA-Public Use
  Company Number: CA-ABBVIE-5755959

PATIENT
  Sex: Female

DRUGS (1)
  1. SKYRIZI [Suspect]
     Active Substance: RISANKIZUMAB-RZAA
     Indication: Crohn^s disease
     Dosage: AT WEEK 12 AND EVERY 8 WEEKS AFTER
     Route: 058
     Dates: start: 20231121

REACTIONS (4)
  - Depression [Unknown]
  - Mental disorder [Unknown]
  - Suicidal ideation [Unknown]
  - Fear [Unknown]
